FAERS Safety Report 24929496 (Version 1)
Quarter: 2025Q1

REPORT INFORMATION
  Report Type: Spontaneous
  Country: US (occurrence: US)
  Receive Date: 20250205
  Receipt Date: 20250205
  Transmission Date: 20250408
  Serious: No
  Sender: SANOFI AVENTIS
  Company Number: US-SA-2025SA031568

PATIENT
  Sex: Male
  Weight: 116.36 kg

DRUGS (1)
  1. DUPIXENT [Suspect]
     Active Substance: DUPILUMAB
     Indication: Dermatitis atopic
     Dosage: 300 MG, QOW
     Route: 058
     Dates: start: 2024

REACTIONS (7)
  - Skin discolouration [Unknown]
  - Condition aggravated [Unknown]
  - Discomfort [Unknown]
  - Skin haemorrhage [Unknown]
  - Scab [Unknown]
  - Pruritus [Unknown]
  - Drug ineffective [Unknown]
